FAERS Safety Report 10109242 (Version 2)
Quarter: 2014Q4

REPORT INFORMATION
  Report Type: Spontaneous
  Country: US (occurrence: US)
  Receive Date: 20140425
  Receipt Date: 20141010
  Transmission Date: 20150528
  Serious: Yes (Hospitalization, Other)
  Sender: FDA-Public Use
  Company Number: US-BAYER-2014-059318

PATIENT
  Age: 39 Year
  Sex: Female
  Weight: 77.1 kg

DRUGS (14)
  1. CYCLOBENZAPRINE [Concomitant]
     Active Substance: CYCLOBENZAPRINE
     Indication: MUSCLE SPASMS
     Dosage: 10 MG, 1 THREE TIMES DAILY AS NEEDED
     Route: 048
     Dates: start: 20060914
  2. YAZ [Suspect]
     Active Substance: DROSPIRENONE\ETHINYL ESTRADIOL
  3. GABAPENTIN. [Concomitant]
     Active Substance: GABAPENTIN
  4. SULFAMETHOXAZOLE [Concomitant]
     Active Substance: SULFAMETHOXAZOLE
     Dosage: UNK
     Route: 048
     Dates: start: 20060814
  5. YASMIN [Suspect]
     Active Substance: DROSPIRENONE\ETHINYL ESTRADIOL
  6. HYDROCODONE [Concomitant]
     Active Substance: HYDROCODONE
  7. RHINOCORT [Concomitant]
     Active Substance: BUDESONIDE
  8. DEPAKOTE [Concomitant]
     Active Substance: DIVALPROEX SODIUM
     Dosage: 500 MG, HS
     Route: 048
     Dates: start: 20060905
  9. TYLENOL 8 HR [Concomitant]
     Active Substance: ACETAMINOPHEN
  10. NEURONTIN [Concomitant]
     Active Substance: GABAPENTIN
  11. LORTAB [Concomitant]
     Active Substance: ACETAMINOPHEN\HYDROCODONE BITARTRATE
  12. GUAIFENESIN. [Concomitant]
     Active Substance: GUAIFENESIN
  13. BACLOFEN. [Concomitant]
     Active Substance: BACLOFEN
  14. TESSALON [Concomitant]
     Active Substance: BENZONATATE

REACTIONS (3)
  - Pulmonary embolism [Recovered/Resolved]
  - Cholelithiasis [None]
  - Deep vein thrombosis [Recovered/Resolved]

NARRATIVE: CASE EVENT DATE: 20061113
